FAERS Safety Report 8946888 (Version 1)
Quarter: 2012Q4

REPORT INFORMATION
  Report Type: 
  Country: FR (occurrence: FR)
  Receive Date: 20121205
  Receipt Date: 20121205
  Transmission Date: 20130627
  Serious: Yes (Life-Threatening, Hospitalization)
  Sender: FDA-Public Use
  Company Number: FR-VIIV HEALTHCARE LIMITED-B0848007A

PATIENT
  Age: 52 Year
  Sex: Male

DRUGS (9)
  1. ZIAGEN [Suspect]
     Indication: HIV INFECTION
     Dosage: 300MG See dosage text
     Route: 048
     Dates: start: 20010811
  2. NORVIR [Suspect]
     Indication: HIV INFECTION
     Dosage: 100MG Per day
     Route: 048
     Dates: start: 20090725
  3. REYATAZ [Suspect]
     Indication: HIV INFECTION
     Dosage: 300MG Per day
     Route: 048
     Dates: start: 20090725
  4. VIDEX [Suspect]
     Indication: HIV INFECTION
     Dosage: 400MG Per day
     Route: 048
     Dates: start: 20010811
  5. FENOFIBRATE [Concomitant]
     Dosage: 160MG Unknown
     Route: 065
  6. UVEDOSE [Concomitant]
  7. TOCO 500 [Concomitant]
     Route: 065
  8. ASPIRINE [Concomitant]
     Route: 065
  9. DAFALGAN [Concomitant]
     Route: 065

REACTIONS (3)
  - Myocardial infarction [Recovered/Resolved with Sequelae]
  - Chest pain [Unknown]
  - Coronary artery stenosis [Unknown]
